FAERS Safety Report 4635553-1 (Version None)
Quarter: 2005Q2

REPORT INFORMATION
  Report Type: 
  Country: None (occurrence: None)
  Receive Date: 20050413
  Receipt Date: 20041223
  Transmission Date: 20051028
  Serious: Yes (Hospitalization)
  Sender: FDA-Public Use
  Company Number: 2004BI002113

PATIENT
  Age: 39 Year
  Sex: Male

DRUGS (3)
  1. AVONEX [Suspect]
     Indication: MULTIPLE SCLEROSIS
     Dosage: 30 UG; QW; IM
     Route: 030
     Dates: start: 20010905
  2. ASPIRIN [Concomitant]
  3. BACLOFEN [Concomitant]

REACTIONS (2)
  - IMPAIRED WORK ABILITY [None]
  - LABYRINTHITIS [None]
